FAERS Safety Report 12423843 (Version 1)
Quarter: 2016Q2

REPORT INFORMATION
  Report Type: Spontaneous
  Country: US (occurrence: US)
  Receive Date: 20160601
  Receipt Date: 20160601
  Transmission Date: 20160815
  Serious: No
  Sender: FDA-Public Use
  Company Number: US-NOVEN PHARMACEUTICALS, INC.-ALL1-2008-00961

PATIENT

DRUGS (8)
  1. CLIMARA                            /00045401/ [Concomitant]
     Indication: OSTEOPOROSIS
  2. MULTIVITAMIN                       /00097801/ [Concomitant]
     Active Substance: VITAMINS
     Indication: SUPPLEMENTATION THERAPY
     Dosage: UNK, 1X/DAY:QD
     Route: 048
  3. ROLAIDS                            /00069401/ [Concomitant]
     Indication: MINERAL SUPPLEMENTATION
     Dosage: UNK, UNKNOWN
  4. DAYTRANA [Suspect]
     Active Substance: METHYLPHENIDATE
     Indication: ATTENTION DEFICIT/HYPERACTIVITY DISORDER
     Dosage: 30 MG, 1X/DAY:QD
     Route: 062
     Dates: start: 2007
  5. CLIMARA                            /00045401/ [Concomitant]
     Indication: OESTROGEN REPLACEMENT THERAPY
  6. DAYTRANA [Suspect]
     Active Substance: METHYLPHENIDATE
     Dosage: 30 MG, 1X/DAY:QD
     Route: 062
     Dates: start: 2007, end: 201510
  7. POTASSIUM [Concomitant]
     Active Substance: POTASSIUM
     Indication: HYPERHIDROSIS
     Dosage: UNK, UNKNOWN
     Dates: start: 2007
  8. CLIMARA                            /00045401/ [Concomitant]
     Indication: HOT FLUSH
     Dosage: UNK, 1X/WEEK
     Route: 062
     Dates: start: 2005

REACTIONS (10)
  - Application site erythema [Not Recovered/Not Resolved]
  - Product quality issue [Unknown]
  - Off label use [Not Recovered/Not Resolved]
  - Application site pruritus [Not Recovered/Not Resolved]
  - Application site urticaria [Not Recovered/Not Resolved]
  - Application site irritation [Not Recovered/Not Resolved]
  - Application site dryness [Not Recovered/Not Resolved]
  - Drug dose omission [Not Recovered/Not Resolved]
  - Application site vesicles [Not Recovered/Not Resolved]
  - Application site eczema [Not Recovered/Not Resolved]

NARRATIVE: CASE EVENT DATE: 2007
